FAERS Safety Report 8088910-8 (Version None)
Quarter: 2012Q1

REPORT INFORMATION
  Report Type: 
  Country: None (occurrence: None)
  Receive Date: 20120128
  Receipt Date: 20110620
  Transmission Date: 20120608
  Serious: Yes (Other)
  Sender: FDA-Public Use
  Company Number: US-ABBOTT-10P-163-0671638-00

PATIENT
  Sex: Male
  Weight: 106.69 kg

DRUGS (7)
  1. FOSAMAX [Concomitant]
     Indication: PRODUCT USED FOR UNKNOWN INDICATION
  2. UNKNOWN OTC [Concomitant]
     Indication: PRODUCT USED FOR UNKNOWN INDICATION
     Dosage: PROSTATE URINE FLOW
  3. M.V.I. [Concomitant]
     Indication: PRODUCT USED FOR UNKNOWN INDICATION
  4. HUMIRA [Suspect]
     Indication: CROHN'S DISEASE
     Route: 058
     Dates: start: 20080602
  5. PREDNISONE TAB [Concomitant]
     Indication: PRODUCT USED FOR UNKNOWN INDICATION
  6. CALCIUM D [Concomitant]
     Indication: PRODUCT USED FOR UNKNOWN INDICATION
  7. LONOX [Concomitant]
     Indication: PRODUCT USED FOR UNKNOWN INDICATION

REACTIONS (4)
  - DYSPNOEA [None]
  - ANKLE FRACTURE [None]
  - OEDEMA PERIPHERAL [None]
  - INJURY [None]
